FAERS Safety Report 25430590 (Version 1)
Quarter: 2025Q2

REPORT INFORMATION
  Report Type: Report from Study
  Country: US (occurrence: US)
  Receive Date: 20250612
  Receipt Date: 20250612
  Transmission Date: 20250716
  Serious: Yes (Other)
  Sender: UCB
  Company Number: US-UCBSA-2025033696

PATIENT

DRUGS (4)
  1. MIDAZOLAM [Suspect]
     Active Substance: MIDAZOLAM
     Indication: Sedation
  2. MIDAZOLAM [Suspect]
     Active Substance: MIDAZOLAM
     Indication: Off label use
  3. FENTANYL [Suspect]
     Active Substance: FENTANYL
     Indication: Sedation
  4. DIPHENHYDRAMINE [Suspect]
     Active Substance: DIPHENHYDRAMINE
     Indication: Sedation

REACTIONS (10)
  - Hypoxia [Unknown]
  - Cardiac arrest [Recovered/Resolved]
  - Cholangitis [Unknown]
  - Haemodynamic instability [Unknown]
  - Haemorrhage [Unknown]
  - Cardiac disorder [Unknown]
  - Respiratory disorder [Unknown]
  - Procedural pancreatitis [Unknown]
  - Adverse event [Unknown]
  - Off label use [Unknown]
